FAERS Safety Report 18911060 (Version 3)
Quarter: 2021Q3

REPORT INFORMATION
  Report Type: Spontaneous
  Country: US (occurrence: US)
  Receive Date: 20210218
  Receipt Date: 20210802
  Transmission Date: 20211014
  Serious: Yes (Hospitalization, Other)
  Sender: FDA-Public Use
  Company Number: US-PFIZER INC-2021144400

PATIENT
  Age: 48 Year
  Sex: Male

DRUGS (1)
  1. XYNTHA [Suspect]
     Active Substance: ANTIHEMOPHILIC FACTOR, HUMAN RECOMBINANT RESIDUES 743-1636 DELETED
     Indication: FACTOR VIII DEFICIENCY
     Dosage: UNK

REACTIONS (7)
  - Knee arthroplasty [Unknown]
  - Osteonecrosis [Unknown]
  - Haemorrhage [Unknown]
  - Haematoma muscle [Unknown]
  - Haemarthrosis [Unknown]
  - Haematoma [Unknown]
  - Haematuria [Unknown]
